FAERS Safety Report 23855859 (Version 2)
Quarter: 2024Q3

REPORT INFORMATION
  Report Type: Spontaneous
  Country: JP (occurrence: JP)
  Receive Date: 20240515
  Receipt Date: 20240913
  Transmission Date: 20241017
  Serious: Yes (Hospitalization, Other)
  Sender: MERCK
  Company Number: JP-MSD-M2024-17381

PATIENT
  Age: 49 Year
  Sex: Female

DRUGS (6)
  1. KEYTRUDA [Suspect]
     Active Substance: PEMBROLIZUMAB
     Indication: Triple negative breast cancer
     Dosage: 200 MILLIGRAM, Q3W
     Route: 041
     Dates: start: 20230808
  2. PACLITAXEL [Suspect]
     Active Substance: PACLITAXEL
     Indication: Triple negative breast cancer
     Dosage: 80 MILLIGRAM/SQ. METER, QW
     Route: 041
     Dates: start: 20230808
  3. CARBOPLATIN [Suspect]
     Active Substance: CARBOPLATIN
     Indication: Triple negative breast cancer
     Dosage: UNK, QW
     Route: 041
     Dates: start: 20230808
  4. BISOPROLOL FUMARATE [Concomitant]
     Active Substance: BISOPROLOL FUMARATE
     Dosage: UNK
     Route: 048
  5. AMLODIPINE BESYLATE\IRBESARTAN [Concomitant]
     Active Substance: AMLODIPINE BESYLATE\IRBESARTAN
     Dosage: UNK
     Route: 048
  6. METFORMIN HYDROCHLORIDE\VILDAGLIPTIN [Concomitant]
     Active Substance: METFORMIN HYDROCHLORIDE\VILDAGLIPTIN
     Dosage: UNK
     Route: 048

REACTIONS (20)
  - Enterocolitis viral [Recovered/Resolved]
  - Immune-mediated enterocolitis [Recovered/Resolved]
  - Hyperthyroidism [Recovered/Resolved]
  - Adrenal insufficiency [Recovered/Resolved]
  - Palpitations [Recovered/Resolved]
  - Glucose urine [Unknown]
  - Hypersensitivity [Recovered/Resolved]
  - Faeces discoloured [Recovering/Resolving]
  - Inflammation [Unknown]
  - Tri-iodothyronine free increased [Recovered/Resolved]
  - Headache [Recovered/Resolved]
  - Pyrexia [Recovered/Resolved]
  - Myalgia [Recovered/Resolved]
  - Hyperglycaemia [Recovering/Resolving]
  - Decreased appetite [Recovering/Resolving]
  - Malaise [Unknown]
  - Headache [Unknown]
  - Asthenia [Unknown]
  - Blood thyroid stimulating hormone decreased [Recovered/Resolved]
  - Thyroiditis [Recovered/Resolved]

NARRATIVE: CASE EVENT DATE: 20230101
